FAERS Safety Report 17417857 (Version 1)
Quarter: 2020Q1

REPORT INFORMATION
  Report Type: Spontaneous
  Country: MY (occurrence: MY)
  Receive Date: 20200214
  Receipt Date: 20200214
  Transmission Date: 20200409
  Serious: Yes (Other)
  Sender: FDA-Public Use
  Company Number: MY-ROCHE-2547189

PATIENT
  Sex: Male

DRUGS (13)
  1. CYCLOPHOSPHAMIDE. [Suspect]
     Active Substance: CYCLOPHOSPHAMIDE
     Indication: HIGH-GRADE B-CELL LYMPHOMA
     Dosage: PART OF R-CHOP
     Route: 065
     Dates: start: 20181211, end: 20190325
  2. PREDNISONE. [Suspect]
     Active Substance: PREDNISONE
     Indication: HIGH-GRADE B-CELL LYMPHOMA
     Dosage: PART OF R-CHOP
     Route: 065
     Dates: start: 20181211, end: 20190325
  3. RITUXIMAB. [Suspect]
     Active Substance: RITUXIMAB
     Dosage: PART OF R-DHAP
     Route: 065
     Dates: start: 20191230, end: 20200120
  4. VINCRISTINE [Suspect]
     Active Substance: VINCRISTINE
     Indication: HIGH-GRADE B-CELL LYMPHOMA
     Dosage: PART OF R-CHOP
     Route: 065
     Dates: start: 20181211, end: 20190325
  5. CYTARABINE. [Suspect]
     Active Substance: CYTARABINE
     Indication: HIGH-GRADE B-CELL LYMPHOMA
     Dosage: PART OF R-DHAP
     Route: 065
     Dates: start: 20191230, end: 20200120
  6. IFOSFAMIDE. [Suspect]
     Active Substance: IFOSFAMIDE
     Indication: HIGH-GRADE B-CELL LYMPHOMA
     Dosage: PART OF R-ICE
     Route: 065
     Dates: start: 20191025, end: 20191206
  7. ETOPOSIDE. [Suspect]
     Active Substance: ETOPOSIDE
     Indication: HIGH-GRADE B-CELL LYMPHOMA
     Dosage: PART OF R-ICE
     Route: 065
     Dates: start: 20191025, end: 20191206
  8. RITUXIMAB. [Suspect]
     Active Substance: RITUXIMAB
     Indication: HIGH-GRADE B-CELL LYMPHOMA
     Dosage: PART OF R-CHOP
     Route: 065
     Dates: start: 20181211, end: 20190325
  9. DOXORUBICIN [Suspect]
     Active Substance: DOXORUBICIN
     Indication: HIGH-GRADE B-CELL LYMPHOMA
     Dosage: PART OF R-CHOP
     Route: 065
     Dates: start: 20181211, end: 20190325
  10. CISPLATIN. [Suspect]
     Active Substance: CISPLATIN
     Indication: HIGH-GRADE B-CELL LYMPHOMA
     Dosage: PART OF R-DHAP
     Route: 065
     Dates: start: 20191230, end: 20200120
  11. RITUXIMAB. [Suspect]
     Active Substance: RITUXIMAB
     Dosage: PART OF R-ICE
     Route: 065
     Dates: start: 20191025, end: 20191206
  12. CARBOPLATIN. [Suspect]
     Active Substance: CARBOPLATIN
     Indication: HIGH-GRADE B-CELL LYMPHOMA
     Dosage: PART OF R-ICE
     Route: 065
     Dates: start: 20191025, end: 20191206
  13. DEXAMETHASONE. [Suspect]
     Active Substance: DEXAMETHASONE
     Indication: HIGH-GRADE B-CELL LYMPHOMA
     Dosage: PART OF R-DHAP
     Route: 065
     Dates: start: 20191230, end: 20200120

REACTIONS (1)
  - Diffuse large B-cell lymphoma recurrent [Unknown]

NARRATIVE: CASE EVENT DATE: 20191021
